FAERS Safety Report 10409612 (Version 1)
Quarter: 2014Q3

REPORT INFORMATION
  Report Type: Spontaneous
  Country: US (occurrence: None)
  Receive Date: 20140822
  Receipt Date: 20140822
  Transmission Date: 20150326
  Serious: Yes (Other)
  Sender: FDA-Public Use
  Company Number: COL_17381_2014

PATIENT
  Sex: Male

DRUGS (1)
  1. COLGATE TOTAL ADVANCED CLEAN [Suspect]
     Active Substance: SODIUM FLUORIDE\TRICLOSAN
     Indication: PRODUCT USED FOR UNKNOWN INDICATION
     Dosage: COVER THE HEAD OF HIS TOOTHBRUSH /TWICE A DAY/ ORAL
     Route: 048
     Dates: end: 201407

REACTIONS (2)
  - Lung neoplasm malignant [None]
  - Gastric cancer [None]

NARRATIVE: CASE EVENT DATE: 2007
